FAERS Safety Report 22317443 (Version 3)
Quarter: 2023Q2

REPORT INFORMATION
  Report Type: Report from Study
  Country: CO (occurrence: CO)
  Receive Date: 20230515
  Receipt Date: 20230530
  Transmission Date: 20230722
  Serious: Yes (Hospitalization, Other)
  Sender: FDA-Public Use
  Company Number: CO-BAYER-2023A051562

PATIENT
  Age: 47 Year
  Sex: Female

DRUGS (2)
  1. VENTAVIS [Suspect]
     Active Substance: ILOPROST
     Indication: Pulmonary arterial hypertension
     Dosage: 6 OR 9 NEBULISATIONS DAILY
     Route: 055
     Dates: start: 20200730, end: 202304
  2. VENTAVIS [Suspect]
     Active Substance: ILOPROST
     Indication: Pulmonary arterial hypertension
     Dosage: 4 X 5.0 MICROGRAMME NEBULISATIONS DAILY ON THE INSTRUCTION OF THE TREATING DOCTOR
     Route: 055
     Dates: start: 202302, end: 202304

REACTIONS (6)
  - General physical health deterioration [Not Recovered/Not Resolved]
  - Respiratory arrest [Unknown]
  - Tachycardia [Not Recovered/Not Resolved]
  - Cough [Not Recovered/Not Resolved]
  - Decreased appetite [Not Recovered/Not Resolved]
  - Product prescribing error [Unknown]

NARRATIVE: CASE EVENT DATE: 20230201
